FAERS Safety Report 6300913-X (Version None)
Quarter: 2009Q3

REPORT INFORMATION
  Report Type: 
  Country: None (occurrence: None)
  Receive Date: 20090807
  Receipt Date: 20090729
  Transmission Date: 20100115
  Serious: Yes (Hospitalization)
  Sender: FDA-Public Use
  Company Number: FR-JNJFOC-20090709461

PATIENT
  Sex: Male
  Weight: 79 kg

DRUGS (4)
  1. PREZISTA [Suspect]
     Indication: HIV INFECTION
     Route: 048
  2. NORVIR [Suspect]
     Indication: HIV INFECTION
  3. KIVEXA [Suspect]
     Indication: HIV INFECTION
     Dosage: DOSE REPORTED AS 1 TABLET
     Route: 048
  4. CRESTOR [Concomitant]
     Indication: DYSLIPIDAEMIA

REACTIONS (1)
  - MYOCARDITIS [None]
